FAERS Safety Report 6887229-8 (Version None)
Quarter: 2010Q3

REPORT INFORMATION
  Report Type: 
  Country: None (occurrence: None)
  Receive Date: 20100730
  Receipt Date: 20100728
  Transmission Date: 20110219
  Serious: Yes (Hospitalization)
  Sender: FDA-Public Use
  Company Number: US-EISAI INC.-E2020-07140-SPO-US

PATIENT
  Sex: Female

DRUGS (2)
  1. ARICEPT [Suspect]
     Route: 048
     Dates: start: 20091001, end: 20091101
  2. ARICEPT [Suspect]
     Route: 048
     Dates: start: 20091101, end: 20100713

REACTIONS (3)
  - DIARRHOEA [None]
  - FOOD CRAVING [None]
  - FOOD POISONING [None]
